FAERS Safety Report 13290376 (Version 1)
Quarter: 2017Q1

REPORT INFORMATION
  Report Type: Report from Study
  Country: US (occurrence: US)
  Receive Date: 20170303
  Receipt Date: 20170303
  Transmission Date: 20170428
  Serious: Yes (Hospitalization, Other)
  Sender: FDA-Public Use
  Company Number: US-AMGEN-USASL2017029763

PATIENT
  Age: 58 Year
  Sex: Female

DRUGS (5)
  1. METHOTREXATE. [Suspect]
     Active Substance: METHOTREXATE
     Indication: PRODUCT USED FOR UNKNOWN INDICATION
     Dosage: UNK
     Route: 065
     Dates: end: 2016
  2. LASIX [Concomitant]
     Active Substance: FUROSEMIDE
     Dosage: UNK
     Dates: end: 2017
  3. DEMADEX [Concomitant]
     Active Substance: TORSEMIDE
     Dosage: 40 MG, BID
  4. DEMADEX [Concomitant]
     Active Substance: TORSEMIDE
     Dosage: UNK
     Dates: start: 2017
  5. ENBREL [Suspect]
     Active Substance: ETANERCEPT
     Indication: RHEUMATOID ARTHRITIS
     Dosage: 50 MG, QWK
     Route: 065
     Dates: start: 2015

REACTIONS (12)
  - Intestinal obstruction [Unknown]
  - Hepatic steatosis [Unknown]
  - Arterial occlusive disease [Unknown]
  - Cardiac discomfort [Unknown]
  - Viral infection [Unknown]
  - Blood magnesium abnormal [Unknown]
  - Ejection fraction decreased [Unknown]
  - Oedema [Unknown]
  - Extravasation [Unknown]
  - Intestinal ischaemia [Unknown]
  - Pyrexia [Unknown]
  - White blood cell count increased [Unknown]

NARRATIVE: CASE EVENT DATE: 20161224
